FAERS Safety Report 8822082 (Version 1)
Quarter: 2012Q4

REPORT INFORMATION
  Report Type: 
  Country: IE (occurrence: IE)
  Receive Date: 20121003
  Receipt Date: 20121003
  Transmission Date: 20130627
  Serious: Yes (Other)
  Sender: FDA-Public Use
  Company Number: IE-US-EMD SERONO, INC.-7043384

PATIENT
  Sex: Female

DRUGS (2)
  1. REBIF [Suspect]
     Indication: RELAPSING-REMITTING MULTIPLE SCLEROSIS
     Route: 058
     Dates: start: 20070115, end: 201110
  2. REBIF [Suspect]
     Route: 058
     Dates: start: 20120827

REACTIONS (4)
  - Lower respiratory tract infection [Recovered/Resolved]
  - Respiratory tract infection [Unknown]
  - Cyst [Recovered/Resolved]
  - Headache [Recovered/Resolved]
